FAERS Safety Report 25881040 (Version 1)
Quarter: 2025Q4

REPORT INFORMATION
  Report Type: Spontaneous
  Country: EU (occurrence: EU)
  Receive Date: 20251004
  Receipt Date: 20251004
  Transmission Date: 20260118
  Serious: Yes (Other)
  Sender: ABBVIE
  Company Number: None

PATIENT
  Age: 32 Year
  Sex: Male

DRUGS (1)
  1. MESALAMINE [Suspect]
     Active Substance: MESALAMINE
     Indication: Crohn^s disease
     Dosage: 4G/DAY
     Route: 050
     Dates: start: 20140901

REACTIONS (2)
  - Renal colic [Recovered/Resolved]
  - Lithiasis [Recovered/Resolved]

NARRATIVE: CASE EVENT DATE: 20250908
